FAERS Safety Report 5502437-6 (Version None)
Quarter: 2007Q4

REPORT INFORMATION
  Report Type: 
  Country: None (occurrence: None)
  Receive Date: 20071030
  Receipt Date: 20071024
  Transmission Date: 20080405
  Serious: Yes (Hospitalization, Other)
  Sender: FDA-Public Use
  Company Number: CA-MERCK-0702CAN00019

PATIENT
  Age: 64 Year
  Sex: Male

DRUGS (5)
  1. COZAAR [Concomitant]
     Indication: HYPERTENSION
     Route: 048
     Dates: start: 20061123, end: 20070117
  2. COZAAR [Concomitant]
     Route: 048
     Dates: start: 20070118, end: 20070219
  3. COZAAR [Concomitant]
     Route: 048
     Dates: start: 20070220, end: 20070319
  4. HYZAAR [Suspect]
     Indication: HYPERTENSION
     Route: 048
     Dates: start: 20070220, end: 20070319
  5. HYZAAR [Suspect]
     Route: 048
     Dates: start: 20070320

REACTIONS (2)
  - HIP DEFORMITY [None]
  - HYPERTENSION [None]
